FAERS Safety Report 16909498 (Version 8)
Quarter: 2020Q3

REPORT INFORMATION
  Report Type: Report from Study
  Country: GB (occurrence: GB)
  Receive Date: 20191011
  Receipt Date: 20200708
  Transmission Date: 20201105
  Serious: Yes (Hospitalization, Other)
  Sender: FDA-Public Use
  Company Number: GB-ROCHE-2422341

PATIENT
  Age: 41 Year
  Sex: Female
  Weight: 54.4 kg

DRUGS (6)
  1. TOCILIZUMAB. [Concomitant]
     Active Substance: TOCILIZUMAB
     Indication: PRODUCT USED FOR UNKNOWN INDICATION
     Route: 065
     Dates: start: 20190925, end: 20190925
  2. IPATASERTIB. [Suspect]
     Active Substance: IPATASERTIB
     Indication: BREAST CANCER
     Dosage: MOST RECENT DOSE ON 22/SEP/2019
     Route: 048
     Dates: start: 20190828
  3. ATEZOLIZUMAB. [Suspect]
     Active Substance: ATEZOLIZUMAB
     Indication: BREAST CANCER
     Dosage: MOST RECENT DOSE ON 11/SEP/2019
     Route: 042
     Dates: start: 20190911
  4. METHYLPREDNISOLONE. [Concomitant]
     Active Substance: METHYLPREDNISOLONE
     Route: 042
     Dates: start: 20190923, end: 20190924
  5. PREDNISONE. [Concomitant]
     Active Substance: PREDNISONE
     Route: 065
     Dates: start: 20190925
  6. CO?AMOXICILLIN [Concomitant]
     Active Substance: AMOXICILLIN\CLAVULANATE POTASSIUM
     Indication: INFECTION
     Route: 048
     Dates: start: 20190922

REACTIONS (4)
  - Autoimmune neuropathy [Recovering/Resolving]
  - Systemic immune activation [Recovered/Resolved with Sequelae]
  - Hepatitis [Recovered/Resolved]
  - Pyrexia [Not Recovered/Not Resolved]

NARRATIVE: CASE EVENT DATE: 20190922
